FAERS Safety Report 21363336 (Version 1)
Quarter: 2022Q3

REPORT INFORMATION
  Report Type: Other
  Country: US (occurrence: None)
  Receive Date: 20220922
  Receipt Date: 20220922
  Transmission Date: 20221027
  Serious: Yes (Other)
  Sender: FDA-Public Use
  Company Number: US-ROCHE-3182475

PATIENT
  Sex: Female

DRUGS (4)
  1. AVASTIN [Suspect]
     Active Substance: BEVACIZUMAB
     Indication: Colorectal cancer metastatic
     Route: 065
  2. XELODA [Suspect]
     Active Substance: CAPECITABINE
     Indication: Colorectal cancer metastatic
     Dosage: INFUSE 500MG (15MG/KG) INTRAVENOUSLY EVERY 3 WEEK(S)
     Route: 048
  3. XELODA [Suspect]
     Active Substance: CAPECITABINE
     Dosage: INFUSE 500MG (15MG/KG) INTRAVENOUSLY EVERY 3 WEEK(S)
     Route: 042
  4. XELODA [Suspect]
     Active Substance: CAPECITABINE
     Dosage: TAKE 2 TABLET(S) BY MOUTH TWICE A DAY FOR 7 DAYS, THEN 7 DAYS OFF FOR A 2 WEEK CYCLE
     Route: 048

REACTIONS (1)
  - Malignant neoplasm progression [Unknown]
